FAERS Safety Report 7755323-5 (Version None)
Quarter: 2011Q3

REPORT INFORMATION
  Report Type: 
  Country: None (occurrence: None)
  Receive Date: 20110914
  Receipt Date: 20110831
  Transmission Date: 20111222
  Serious: Yes (Hospitalization)
  Sender: FDA-Public Use
  Company Number: TPA2011A05405

PATIENT
  Age: 92 Year
  Sex: Female

DRUGS (4)
  1. EDARBI [Suspect]
     Indication: HYPERTENSION
     Dosage: 80 MG, QAM, PER ORAL
     Route: 048
     Dates: start: 20110801, end: 20110801
  2. LASIX [Concomitant]
  3. HYDRALAZINE HCL [Concomitant]
  4. TOPROL-XL [Concomitant]

REACTIONS (3)
  - URINE OUTPUT DECREASED [None]
  - URINARY RETENTION [None]
  - DIARRHOEA [None]
